FAERS Safety Report 7779925-5 (Version None)
Quarter: 2011Q3

REPORT INFORMATION
  Report Type: 
  Country: None (occurrence: None)
  Receive Date: 20110927
  Receipt Date: 20110922
  Transmission Date: 20111222
  Serious: Yes (Death)
  Sender: FDA-Public Use
  Company Number: JP-ASTELLAS-2011US006066

PATIENT
  Sex: Male

DRUGS (1)
  1. AMBISOME [Suspect]
     Indication: ASPERGILLOMA
     Dosage: 150 MG, UID/QD
     Route: 065
     Dates: start: 20110818, end: 20110916

REACTIONS (1)
  - LARYNGEAL CANCER [None]
